FAERS Safety Report 8072128-9 (Version None)
Quarter: 2012Q1

REPORT INFORMATION
  Report Type: 
  Country: None (occurrence: None)
  Receive Date: 20120126
  Receipt Date: 20120119
  Transmission Date: 20120608
  Serious: Yes (Life-Threatening)
  Sender: FDA-Public Use
  Company Number: JP-CELGENEUS-087-50794-12012404

PATIENT
  Sex: Male

DRUGS (11)
  1. MEROPENEM [Concomitant]
     Route: 065
     Dates: start: 20110704, end: 20110714
  2. MAXIPIME [Concomitant]
     Route: 065
     Dates: start: 20110628, end: 20110704
  3. MINOCYCLINE HCL [Concomitant]
     Route: 065
     Dates: start: 20110705, end: 20110710
  4. AMPICILLIN SODIUM/SULBACTAM SODIUM [Concomitant]
     Route: 065
     Dates: start: 20111129, end: 20111210
  5. VIDAZA [Suspect]
     Dosage: 100 MILLIGRAM
     Route: 058
     Dates: start: 20110726, end: 20110801
  6. VANCOMYCIN HYDROCHLORIDE [Concomitant]
     Indication: PYREXIA
     Route: 065
     Dates: start: 20110707, end: 20110717
  7. NEUTROGIN [Concomitant]
     Route: 065
     Dates: start: 20110706, end: 20110709
  8. VIDAZA [Suspect]
     Indication: MYELODYSPLASTIC SYNDROME
     Dosage: 100 MILLIGRAM
     Route: 058
     Dates: start: 20110527, end: 20110602
  9. VIDAZA [Suspect]
     Dosage: 100 MILLIGRAM
     Route: 058
     Dates: start: 20111024, end: 20111101
  10. ITRACONAZOLE [Concomitant]
     Route: 065
     Dates: start: 20110526, end: 20110811
  11. VIDAZA [Suspect]
     Dosage: 100 MILLIGRAM
     Route: 058
     Dates: start: 20110905, end: 20110911

REACTIONS (2)
  - LUNG INFECTION [None]
  - URINARY TRACT INFECTION [None]
